FAERS Safety Report 11599169 (Version 2)
Quarter: 2015Q4

REPORT INFORMATION
  Report Type: Spontaneous
  Country: US (occurrence: US)
  Receive Date: 20151006
  Receipt Date: 20151007
  Transmission Date: 20160304
  Serious: No
  Sender: FDA-Public Use
  Company Number: US-TEVA-597312USA

PATIENT
  Age: 68 Year
  Sex: Female
  Weight: 31.78 kg

DRUGS (4)
  1. LUTEIN [Concomitant]
     Active Substance: LUTEIN
  2. VITAMIN B [Concomitant]
     Active Substance: VITAMIN B
  3. PROAIR HFA [Suspect]
     Active Substance: ALBUTEROL SULFATE
     Indication: BRONCHITIS
     Dates: start: 20150815
  4. VITAMIN D3 [Concomitant]
     Active Substance: CHOLECALCIFEROL

REACTIONS (3)
  - Headache [Unknown]
  - Laryngitis [Unknown]
  - Sinusitis [Unknown]

NARRATIVE: CASE EVENT DATE: 20150815
